FAERS Safety Report 10073223 (Version 3)
Quarter: 2014Q2

REPORT INFORMATION
  Report Type: Spontaneous
  Country: US (occurrence: US)
  Receive Date: 20140411
  Receipt Date: 20140612
  Transmission Date: 20141212
  Serious: Yes (Hospitalization)
  Sender: FDA-Public Use
  Company Number: US-GLAXOSMITHKLINE-A1068241A

PATIENT
  Age: 68 Year
  Sex: Female

DRUGS (1)
  1. ADVAIR [Suspect]
     Indication: ASTHMA
     Route: 065
     Dates: start: 20081216

REACTIONS (9)
  - Road traffic accident [Not Recovered/Not Resolved]
  - Fall [Unknown]
  - Head injury [Unknown]
  - Concussion [Unknown]
  - Memory impairment [Unknown]
  - Back pain [Unknown]
  - Urinary tract infection [Unknown]
  - Bacteraemia [Unknown]
  - Therapy cessation [Unknown]
